FAERS Safety Report 8984376 (Version 1)
Quarter: 2012Q4

REPORT INFORMATION
  Report Type: Spontaneous
  Country: GB (occurrence: None)
  Receive Date: 20121217
  Receipt Date: 20121217
  Transmission Date: 20130627
  Serious: No
  Sender: FDA-Public Use
  Company Number: GB-2012-4038

PATIENT
  Sex: Male

DRUGS (1)
  1. NAVELBINE [Suspect]
     Indication: LUNG CANCER
     Dosage: UNK,  Intravenous
     Route: 042

REACTIONS (4)
  - Injection site reaction [None]
  - Blister [None]
  - Erythema [None]
  - Swelling [None]
